FAERS Safety Report 13941635 (Version 3)
Quarter: 2017Q4

REPORT INFORMATION
  Report Type: Report from Study
  Country: US (occurrence: US)
  Receive Date: 20170906
  Receipt Date: 20171106
  Transmission Date: 20180320
  Serious: Yes (Death, Hospitalization)
  Sender: FDA-Public Use
  Company Number: US-ACTELION-A-US2017-149479

PATIENT
  Age: 80 Year
  Sex: Female
  Weight: 102.4 kg

DRUGS (6)
  1. OPSUMIT [Suspect]
     Active Substance: MACITENTAN
     Indication: PULMONARY ARTERIAL HYPERTENSION
     Dosage: 10 MG, QD
     Route: 048
  2. XARELTO [Concomitant]
     Active Substance: RIVAROXABAN
  3. ADEMPAS [Concomitant]
     Active Substance: RIOCIGUAT
     Dosage: 1.5 MG, TID
  4. FUROSEMIDE. [Concomitant]
     Active Substance: FUROSEMIDE
  5. ADEMPAS [Concomitant]
     Active Substance: RIOCIGUAT
     Dosage: 1 MG, TID
  6. TORSEMIDE. [Concomitant]
     Active Substance: TORSEMIDE
     Dosage: 20 MG, UNK
     Route: 048

REACTIONS (14)
  - Pericardial effusion [Unknown]
  - Arthritis [Unknown]
  - Haemorrhage [Recovered/Resolved]
  - Dyspnoea [Unknown]
  - Fall [Unknown]
  - Gout [Unknown]
  - Transfusion [Recovered/Resolved]
  - Dizziness [Unknown]
  - Oedema peripheral [Unknown]
  - Death [Fatal]
  - Swelling [Unknown]
  - Hypotension [Unknown]
  - Herpes zoster [Unknown]
  - Anaemia [Unknown]

NARRATIVE: CASE EVENT DATE: 20171101
